FAERS Safety Report 17367380 (Version 1)
Quarter: 2020Q1

REPORT INFORMATION
  Report Type: Spontaneous
  Country: US (occurrence: US)
  Receive Date: 20200204
  Receipt Date: 20200204
  Transmission Date: 20200409
  Serious: Yes (Hospitalization, Other)
  Sender: FDA-Public Use
  Company Number: US-PFIZER INC-2020044137

PATIENT
  Age: 29 Year
  Sex: Female
  Weight: 131.54 kg

DRUGS (1)
  1. PREMARIN [Suspect]
     Active Substance: ESTROGENS, CONJUGATED
     Dosage: 5 MG, DAILY (FOUR TABLETS IN MORNING AND FOUR TABLETS IN EVENING BY MOUTH)
     Route: 048
     Dates: start: 202001, end: 20200124

REACTIONS (2)
  - Haemoglobin decreased [Unknown]
  - Loss of consciousness [Unknown]

NARRATIVE: CASE EVENT DATE: 20200121
